FAERS Safety Report 24753376 (Version 1)
Quarter: 2024Q4

REPORT INFORMATION
  Report Type: Spontaneous
  Country: US (occurrence: US)
  Receive Date: 20241219
  Receipt Date: 20241219
  Transmission Date: 20250114
  Serious: Yes (Hospitalization)
  Sender: MYLAN
  Company Number: US-MYLANLABS-2024M1113555

PATIENT
  Age: 43 Year
  Sex: Female

DRUGS (6)
  1. VERAPAMIL [Suspect]
     Active Substance: VERAPAMIL HYDROCHLORIDE
     Indication: Hypoglycaemia
     Dosage: UNK, TREATMENT WAS SWITCHED TO WAS SWITCHED TO PASIREOTIDE, EVEROLIMUS, AND DEXAMETHASONE
     Route: 065
  2. EVEROLIMUS [Suspect]
     Active Substance: EVEROLIMUS
     Indication: Hypoglycaemia
     Dosage: UNK
     Route: 065
  3. DEXAMETHASONE [Suspect]
     Active Substance: DEXAMETHASONE
     Indication: Hypoglycaemia
     Dosage: UNK
     Route: 065
  4. DIAZOXIDE [Concomitant]
     Active Substance: DIAZOXIDE
     Indication: Hypoglycaemia
     Dosage: UNK, TREATMENT WAS SWITCHED TO WAS SWITCHED TO PASIREOTIDE, EVEROLIMUS, AND DEXAMETHASONE
     Route: 065
  5. LANREOTIDE [Concomitant]
     Active Substance: LANREOTIDE
     Indication: Hypoglycaemia
     Dosage: UNK
     Route: 065
  6. PASIREOTIDE [Concomitant]
     Active Substance: PASIREOTIDE
     Indication: Hypoglycaemia
     Dosage: UNK
     Route: 065

REACTIONS (2)
  - Drug ineffective [Unknown]
  - Off label use [Unknown]
